FAERS Safety Report 11751524 (Version 1)
Quarter: 2015Q4

REPORT INFORMATION
  Report Type: Spontaneous
  Country: US (occurrence: US)
  Receive Date: 20151118
  Receipt Date: 20151118
  Transmission Date: 20160304
  Serious: No
  Sender: FDA-Public Use
  Company Number: US-PFIZER INC-2015391063

PATIENT
  Sex: Female
  Weight: 86 kg

DRUGS (9)
  1. ARMOUR THYROID [Concomitant]
     Active Substance: THYROID, PORCINE\THYROID, UNSPECIFIED
     Indication: THYROID DISORDER
     Dosage: 60 MG, 1X/DAY, IN THE MORNING
     Route: 048
  2. TRAZODONE [Concomitant]
     Active Substance: TRAZODONE HYDROCHLORIDE
     Indication: INSOMNIA
     Dosage: 1X/DAY, 50MG TABLET BY MOUTH 3-4 TABLETS AT NIGHT
     Route: 048
  3. MUPIROCIN. [Concomitant]
     Active Substance: MUPIROCIN
     Indication: NASAL CONGESTION
     Dosage: 2% OINTMENT PUT FIFTH OF TUBE IN SALINE SOLUTION
  4. FLUTICASONE [Concomitant]
     Active Substance: FLUTICASONE\FLUTICASONE PROPIONATE
     Indication: NASAL CONGESTION
     Dosage: 50 ?G, AS NEEDED
     Route: 045
  5. PRISTIQ EXTENDED RELEASE [Suspect]
     Active Substance: DESVENLAFAXINE SUCCINATE
     Indication: CEREBROVASCULAR ACCIDENT
     Dosage: 50 MG, 1X/DAY
     Route: 048
     Dates: start: 2005
  6. PROGESTERONE. [Concomitant]
     Active Substance: PROGESTERONE
     Indication: HOT FLUSH
     Dosage: 100 MG, 1X/DAY
     Route: 048
  7. BUPROPION. [Concomitant]
     Active Substance: BUPROPION
     Dosage: 200 MG, 2X/DAY, IN THE MORNING AND AT NIGHT
     Route: 048
  8. PRISTIQ EXTENDED RELEASE [Suspect]
     Active Substance: DESVENLAFAXINE SUCCINATE
     Dosage: 100 MG, 1X/DAY
     Route: 048
  9. METHYLPHENIDATE. [Concomitant]
     Active Substance: METHYLPHENIDATE
     Indication: CEREBROVASCULAR ACCIDENT
     Dosage: 20 MG, DAILY, 10 MG TABLET BY MOUTH IN THE MORNING AND ONE 10MG TABLET AFTER LUNCH
     Route: 048

REACTIONS (1)
  - Drug tolerance [Unknown]
